FAERS Safety Report 10153547 (Version 1)
Quarter: 2014Q2

REPORT INFORMATION
  Report Type: Spontaneous
  Country: GB (occurrence: GB)
  Receive Date: 20140505
  Receipt Date: 20140505
  Transmission Date: 20141212
  Serious: Yes (Death, Other)
  Sender: FDA-Public Use
  Company Number: GB-GILEAD-2014-0101568

PATIENT
  Age: 44 Year
  Sex: Male
  Weight: 70 kg

DRUGS (9)
  1. TRUVADA [Suspect]
     Indication: HIV INFECTION
     Route: 048
     Dates: start: 20140220, end: 20140407
  2. CO-TRIMOXAZOLE [Suspect]
     Indication: PROPHYLAXIS
     Route: 048
     Dates: start: 20140210, end: 20140407
  3. DARUNAVIR [Suspect]
     Indication: HIV INFECTION
     Route: 065
     Dates: end: 201403
  4. RITONAVIR [Suspect]
     Indication: HIV INFECTION
     Route: 065
     Dates: end: 201403
  5. BENZATHINE PENICILLIN [Concomitant]
     Route: 065
  6. FLUCONAZOLE [Concomitant]
     Route: 065
  7. LOPERAMIDE                         /00384302/ [Concomitant]
     Route: 065
  8. TAZOCIN [Concomitant]
     Route: 065
  9. MULTIVITAMIN                       /07504101/ [Concomitant]
     Route: 065
     Dates: start: 20140220, end: 20140331

REACTIONS (7)
  - Acute hepatic failure [Fatal]
  - Ascites [Not Recovered/Not Resolved]
  - Pancytopenia [Not Recovered/Not Resolved]
  - Jaundice [Not Recovered/Not Resolved]
  - Pyrexia [Not Recovered/Not Resolved]
  - Pleural effusion [Not Recovered/Not Resolved]
  - Thrombocytopenia [Not Recovered/Not Resolved]
